FAERS Safety Report 15487539 (Version 1)
Quarter: 2018Q4

REPORT INFORMATION
  Report Type: Spontaneous
  Country: US (occurrence: US)
  Receive Date: 20181003
  Receipt Date: 20181003
  Transmission Date: 20190205
  Serious: Yes (Death)
  Sender: FDA-Public Use
  Company Number: None

PATIENT
  Age: 60 Year
  Sex: Female

DRUGS (2)
  1. PROMACTA [Suspect]
     Active Substance: ELTROMBOPAG OLAMINE
     Dates: start: 20180711, end: 20180905
  2. ESBRIET [Suspect]
     Active Substance: PIRFENIDONE
     Dates: end: 20180905

REACTIONS (1)
  - Death [None]

NARRATIVE: CASE EVENT DATE: 20180905
